FAERS Safety Report 21878418 (Version 1)
Quarter: 2023Q1

REPORT INFORMATION
  Report Type: Spontaneous
  Country: US (occurrence: None)
  Receive Date: 20230118
  Receipt Date: 20230118
  Transmission Date: 20230417
  Serious: Yes (Other)
  Sender: FDA-Public Use
  Company Number: US-ROCHE-3265806

PATIENT
  Sex: Male

DRUGS (1)
  1. PEGINTERFERON ALFA-2A [Suspect]
     Active Substance: PEGINTERFERON ALFA-2A
     Indication: Product used for unknown indication
     Route: 058

REACTIONS (1)
  - Monoplegia [Unknown]
